FAERS Safety Report 23198394 (Version 3)
Quarter: 2024Q1

REPORT INFORMATION
  Report Type: Spontaneous
  Country: DE (occurrence: DE)
  Receive Date: 20231117
  Receipt Date: 20240112
  Transmission Date: 20240410
  Serious: Yes (Other)
  Sender: FDA-Public Use
  Company Number: DE-SA-2022SA018680

PATIENT
  Age: 77 Year
  Sex: Male
  Weight: 77 kg

DRUGS (57)
  1. MOMETASONE FUROATE [Suspect]
     Active Substance: MOMETASONE FUROATE
     Indication: Product used for unknown indication
     Dosage: DOSE DESCRIPTION : UNK UNK, AS NEEDED (2 PUFFS)
  2. MOMETASONE FUROATE [Suspect]
     Active Substance: MOMETASONE FUROATE
     Indication: Product used for unknown indication
     Dosage: DOSE DESCRIPTION : UNK UNK, 2 PUFFS BID
  3. MOMETASONE FUROATE [Suspect]
     Active Substance: MOMETASONE FUROATE
     Dosage: DOSE DESCRIPTION : 2 PUFFS, TWICE DAILY (1-0-1)
  4. MOMETASONE FUROATE [Suspect]
     Active Substance: MOMETASONE FUROATE
     Dosage: DOSE DESCRIPTION : UNK, TWICE DAILY (DAILY 2 PUFF(S), BID 1-0-1)
  5. MOMETASONE FUROATE [Suspect]
     Active Substance: MOMETASONE FUROATE
     Dosage: DOSE DESCRIPTION : UNK UNK, 2 PUFFS BID
  6. MOMETASONE FUROATE [Suspect]
     Active Substance: MOMETASONE FUROATE
     Dosage: DOSE DESCRIPTION : UNK UNK, 2 PUFFS BID
  7. MOMETASONE FUROATE [Suspect]
     Active Substance: MOMETASONE FUROATE
     Dosage: DOSE DESCRIPTION : 2 PUFFS, TWICE DAILY (1-0-1)
  8. CALCIUM [Suspect]
     Active Substance: CALCIUM
     Indication: Product used for unknown indication
     Dosage: DOSE DESCRIPTION : UNK UNK, UNKNOWN FREQ.
  9. CALCIUM [Suspect]
     Active Substance: CALCIUM
     Dosage: DOSE DESCRIPTION : UNK UNK, UNKNOWN FREQ.
  10. BIOTIN [Suspect]
     Active Substance: BIOTIN
     Indication: Product used for unknown indication
     Dosage: DOSE DESCRIPTION : UNK UNK, UNKNOWN FREQ.(UNK UNK, DAILY)
  11. BIOTIN [Suspect]
     Active Substance: BIOTIN
     Dosage: DOSE DESCRIPTION : UNK UNK, ONCE DAILY (1-0-0)
  12. BIOTIN [Suspect]
     Active Substance: BIOTIN
     Dosage: DOSE DESCRIPTION : UNK UNK, UNKNOWN FREQ.(UNK UNK, DAILY)
  13. BIOTIN [Suspect]
     Active Substance: BIOTIN
     Dosage: DOSE DESCRIPTION : UNK UNK, UNKNOWN FREQ.(UNK UNK, DAILY)
  14. BIOTIN [Suspect]
     Active Substance: BIOTIN
     Dosage: DOSE DESCRIPTION : UNK UNK, UNKNOWN FREQ.(UNK UNK, DAILY)
  15. BIOTIN [Suspect]
     Active Substance: BIOTIN
     Dosage: DOSE DESCRIPTION : UNK UNK, ONCE DAILY (1-0-0)
  16. TAMSULOSIN HYDROCHLORIDE [Suspect]
     Active Substance: TAMSULOSIN HYDROCHLORIDE
     Indication: Product used for unknown indication
     Dosage: DOSE DESCRIPTION : UNK
  17. TAMSULOSIN HYDROCHLORIDE [Suspect]
     Active Substance: TAMSULOSIN HYDROCHLORIDE
     Indication: Product used for unknown indication
     Dosage: DOSE DESCRIPTION : UNK UNK, UNKNOWN FREQ.
  18. TAMSULOSIN HYDROCHLORIDE [Suspect]
     Active Substance: TAMSULOSIN HYDROCHLORIDE
     Dosage: DOSE DESCRIPTION : UNK UNK, UNKNOWN FREQ.
  19. TAMSULOSIN HYDROCHLORIDE [Suspect]
     Active Substance: TAMSULOSIN HYDROCHLORIDE
     Dosage: DOSE DESCRIPTION : UNK
  20. TAMSULOSIN HYDROCHLORIDE [Suspect]
     Active Substance: TAMSULOSIN HYDROCHLORIDE
     Dosage: DOSE DESCRIPTION : UNK
  21. TAMSULOSIN HYDROCHLORIDE [Suspect]
     Active Substance: TAMSULOSIN HYDROCHLORIDE
     Dosage: DOSE DESCRIPTION : UNK UNK, UNKNOWN FREQ.
  22. ROSUVASTATIN CALCIUM [Suspect]
     Active Substance: ROSUVASTATIN CALCIUM
     Indication: Product used for unknown indication
     Dosage: DOSE DESCRIPTION : UNK UNK, UNKNOWN FREQ.
  23. ROSUVASTATIN CALCIUM [Suspect]
     Active Substance: ROSUVASTATIN CALCIUM
     Dosage: DOSE DESCRIPTION : UNK UNK, UNKNOWN FREQ.
  24. IBUPROFEN [Suspect]
     Active Substance: IBUPROFEN
     Indication: Product used for unknown indication
     Dosage: DOSE DESCRIPTION : UNK UNK, AS NEEDED (PRN)
  25. IBUPROFEN [Suspect]
     Active Substance: IBUPROFEN
     Dosage: DOSE DESCRIPTION : UNK UNK, AS NEEDED (PRN)
  26. ATROVENT [Suspect]
     Active Substance: IPRATROPIUM BROMIDE
     Indication: Secretion discharge
     Dosage: DOSE DESCRIPTION : UNK UNK, UNKNOWN FREQ.
     Dates: start: 2018, end: 2018
  27. ATROVENT [Suspect]
     Active Substance: IPRATROPIUM BROMIDE
     Indication: Pneumothorax
  28. ATROVENT [Suspect]
     Active Substance: IPRATROPIUM BROMIDE
     Indication: Chest discomfort
  29. ATROVENT [Suspect]
     Active Substance: IPRATROPIUM BROMIDE
     Indication: Cough
  30. ATROVENT [Suspect]
     Active Substance: IPRATROPIUM BROMIDE
     Indication: Nasopharyngitis
  31. ATROVENT [Suspect]
     Active Substance: IPRATROPIUM BROMIDE
     Indication: Dyspnoea
  32. ATROVENT [Suspect]
     Active Substance: IPRATROPIUM BROMIDE
     Indication: Secretion discharge
  33. ATROVENT [Suspect]
     Active Substance: IPRATROPIUM BROMIDE
     Indication: Dysphonia
  34. CALCIUM CARBONATE [Suspect]
     Active Substance: CALCIUM CARBONATE
     Indication: Product used for unknown indication
     Dosage: DOSE DESCRIPTION : UNK UNK, UNKNOWN FREQ.(UNK (1 IN 1.5 DAY UNK, CALCIUM HEXAL (CALCIUM CARBONATE))
  35. CALCIUM CARBONATE [Suspect]
     Active Substance: CALCIUM CARBONATE
     Dosage: DOSE DESCRIPTION : UNK UNK, UNKNOWN FREQ.(UNK (1 IN 1.5 DAY UNK, CALCIUM HEXAL (CALCIUM CARBONATE))1
  36. AMBROXOL HYDROCHLORIDE [Suspect]
     Active Substance: AMBROXOL HYDROCHLORIDE
     Indication: Product used for unknown indication
     Dosage: DOSE DESCRIPTION : UNK UNK, UNKNOWN FREQ.
  37. AMBROXOL HYDROCHLORIDE [Suspect]
     Active Substance: AMBROXOL HYDROCHLORIDE
     Indication: Product used for unknown indication
     Dosage: DOSE DESCRIPTION : UNK
  38. AMBROXOL HYDROCHLORIDE [Suspect]
     Active Substance: AMBROXOL HYDROCHLORIDE
     Dosage: DOSE DESCRIPTION : UNK UNK, UNKNOWN FREQ.
  39. AMBROXOL HYDROCHLORIDE [Suspect]
     Active Substance: AMBROXOL HYDROCHLORIDE
     Dosage: DOSE DESCRIPTION : UNK
  40. .ALPHA.-TOCOPHEROL, D- [Suspect]
     Active Substance: .ALPHA.-TOCOPHEROL, D-
     Indication: Product used for unknown indication
     Dosage: DOSE DESCRIPTION : UNK UNK, TWICE WEEKLY (Q2W)
  41. .ALPHA.-TOCOPHEROL, D- [Suspect]
     Active Substance: .ALPHA.-TOCOPHEROL, D-
     Dosage: UNIT DOSE : 20000DOSE DESCRIPTION : 20000 UNK, QW
  42. .ALPHA.-TOCOPHEROL, D- [Suspect]
     Active Substance: .ALPHA.-TOCOPHEROL, D-
     Dosage: DOSE DESCRIPTION : UNK UNK, TWICE WEEKLY (Q2W)
  43. .ALPHA.-TOCOPHEROL, D- [Suspect]
     Active Substance: .ALPHA.-TOCOPHEROL, D-
     Dosage: DOSE DESCRIPTION : UNK, ONCE WEEKLY
  44. .ALPHA.-TOCOPHEROL, D- [Suspect]
     Active Substance: .ALPHA.-TOCOPHEROL, D-
     Dosage: DOSE DESCRIPTION : 2000 IU, ONCE WEEKLY (2000 IU, OW)
  45. .ALPHA.-TOCOPHEROL, D- [Suspect]
     Active Substance: .ALPHA.-TOCOPHEROL, D-
     Dosage: DOSE DESCRIPTION : UNK, Q2W
  46. .ALPHA.-TOCOPHEROL, D- [Suspect]
     Active Substance: .ALPHA.-TOCOPHEROL, D-
     Dosage: 20000 INTERNATIONAL UNIT, QW
  47. .ALPHA.-TOCOPHEROL, D- [Suspect]
     Active Substance: .ALPHA.-TOCOPHEROL, D-
     Dosage: DOSE DESCRIPTION : 20000 UNK, QW
  48. .ALPHA.-TOCOPHEROL, D- [Suspect]
     Active Substance: .ALPHA.-TOCOPHEROL, D-
     Dosage: DOSE DESCRIPTION : UNK UNK, TWICE WEEKLY (Q2W)
  49. .ALPHA.-TOCOPHEROL, D- [Suspect]
     Active Substance: .ALPHA.-TOCOPHEROL, D-
     Dosage: DOSE DESCRIPTION : 20000 UNK, QW
  50. .ALPHA.-TOCOPHEROL, D- [Suspect]
     Active Substance: .ALPHA.-TOCOPHEROL, D-
     Dosage: DOSE DESCRIPTION : UNK UNK, TWICE WEEKLY (Q2W)
  51. .ALPHA.-TOCOPHEROL, D- [Suspect]
     Active Substance: .ALPHA.-TOCOPHEROL, D-
     Dosage: DOSE DESCRIPTION : UNK, ONCE WEEKLY
  52. .ALPHA.-TOCOPHEROL, D- [Suspect]
     Active Substance: .ALPHA.-TOCOPHEROL, D-
     Dosage: DOSE DESCRIPTION : UNK, ONCE WEEKLY
  53. .ALPHA.-TOCOPHEROL, D- [Suspect]
     Active Substance: .ALPHA.-TOCOPHEROL, D-
     Dosage: DOSE DESCRIPTION : 2000 IU, ONCE WEEKLY (2000 IU, OW)
  54. ASPIRIN [Suspect]
     Active Substance: ASPIRIN
     Indication: Product used for unknown indication
     Dosage: DOSE DESCRIPTION : UNK, STRENGTH: 100 MG
  55. ASPIRIN [Suspect]
     Active Substance: ASPIRIN
     Indication: Product used for unknown indication
     Dosage: DOSE DESCRIPTION : UNK UNK, UNKNOWN FREQ. (STRENGTH 100)
  56. ASPIRIN [Suspect]
     Active Substance: ASPIRIN
     Dosage: DOSE DESCRIPTION : UNK UNK, UNKNOWN FREQ. (STRENGTH 100)
  57. ASPIRIN [Suspect]
     Active Substance: ASPIRIN
     Dosage: DOSE DESCRIPTION : UNK, STRENGTH: 100 MG

REACTIONS (1)
  - Pneumothorax [Not Recovered/Not Resolved]

NARRATIVE: CASE EVENT DATE: 20180101
